FAERS Safety Report 25202312 (Version 2)
Quarter: 2025Q2

REPORT INFORMATION
  Report Type: Spontaneous
  Country: JP (occurrence: JP)
  Receive Date: 20250416
  Receipt Date: 20250522
  Transmission Date: 20250717
  Serious: Yes (Death, Other)
  Sender: GILEAD
  Company Number: JP-GILEAD-2025-0705833

PATIENT
  Age: 76 Year
  Sex: Female

DRUGS (8)
  1. TRODELVY [Suspect]
     Active Substance: SACITUZUMAB GOVITECAN-HZIY
     Indication: Triple negative breast cancer
     Route: 065
     Dates: start: 20250219, end: 20250226
  2. TRODELVY [Suspect]
     Active Substance: SACITUZUMAB GOVITECAN-HZIY
     Route: 065
     Dates: start: 20250312
  3. CANDESARTAN [Concomitant]
     Active Substance: CANDESARTAN
  4. AMLODIPINE BESYLATE [Concomitant]
     Active Substance: AMLODIPINE BESYLATE
  5. MIYA-BM [Concomitant]
     Active Substance: CLOSTRIDIUM BUTYRICUM SPORES STRAIN M-55
  6. LANSOPRAZOLE [Concomitant]
     Active Substance: LANSOPRAZOLE
  7. BERIZYM [CELLULASE;DIASTASE;LIPASE;PANCREATIN] [Concomitant]
  8. REBAMIPIDE [Concomitant]
     Active Substance: REBAMIPIDE

REACTIONS (8)
  - Metastases to liver [Fatal]
  - Triple negative breast cancer [Fatal]
  - Diarrhoea [Recovered/Resolved]
  - Neutrophil count decreased [Recovering/Resolving]
  - Diarrhoea [Recovering/Resolving]
  - Constipation [Unknown]
  - Weight decreased [Unknown]
  - Neutrophil count decreased [Unknown]

NARRATIVE: CASE EVENT DATE: 20250101
